FAERS Safety Report 6056251-6 (Version None)
Quarter: 2009Q1

REPORT INFORMATION
  Report Type: 
  Country: None (occurrence: None)
  Receive Date: 20090126
  Receipt Date: 20090126
  Transmission Date: 20090719
  Serious: Yes (Hospitalization)
  Sender: FDA-Public Use
  Company Number: None

PATIENT
  Age: 56 Year
  Sex: Male
  Weight: 97.5234 kg

DRUGS (4)
  1. TARCEVA [Suspect]
     Indication: PHARYNGEAL CANCER STAGE UNSPECIFIED
     Dosage: 150MG DAILY PO OR PEG
     Route: 048
     Dates: start: 20081217
  2. TARCEVA [Suspect]
     Indication: TONGUE NEOPLASM MALIGNANT STAGE UNSPECIFIED
     Dosage: 150MG DAILY PO OR PEG
     Route: 048
     Dates: start: 20081217
  3. RADIATION THERAPY [Concomitant]
  4. INTRA-ARTERIAL CISPLATIN [Concomitant]

REACTIONS (2)
  - NAUSEA [None]
  - VOMITING [None]
